FAERS Safety Report 26191389 (Version 1)
Quarter: 2025Q4

REPORT INFORMATION
  Report Type: Spontaneous
  Country: EU (occurrence: EU)
  Receive Date: 20251223
  Receipt Date: 20251223
  Transmission Date: 20260117
  Serious: Yes (Disabling)
  Sender: CATALYST PHARMA
  Company Number: EU-CATALYSTPHARMACEUTICALPARTNERS-IE-CATA-25-01970

PATIENT

DRUGS (1)
  1. FYCOMPA [Suspect]
     Active Substance: PERAMPANEL
     Indication: Epilepsy
     Dosage: 4.0 MILLIGRAM(S) (4 MILLIGRAM(S), 1 IN 1 DAY)
     Route: 048
     Dates: start: 20250711, end: 20250915

REACTIONS (3)
  - Gait inability [Recovered/Resolved]
  - Hypokinesia [Recovered/Resolved]
  - Malaise [Recovered/Resolved]

NARRATIVE: CASE EVENT DATE: 20250718
